FAERS Safety Report 6601735-2 (Version None)
Quarter: 2010Q1

REPORT INFORMATION
  Report Type: 
  Country: None (occurrence: None)
  Receive Date: 20100218
  Receipt Date: 20100127
  Transmission Date: 20100710
  Serious: Yes (Hospitalization, Other)
  Sender: FDA-Public Use
  Company Number: 2009AC000196

PATIENT
  Age: 90 Year
  Sex: Female

DRUGS (15)
  1. DIGOXIN [Suspect]
     Dosage: 0.125 MG;QD; PO
     Route: 048
     Dates: start: 20070111, end: 20080401
  2. DIGOXIN [Suspect]
     Dosage: .0125 MG; QD; PO
     Route: 048
     Dates: start: 20040218
  3. ASPIRIN [Concomitant]
  4. COREG [Concomitant]
  5. DEMADEX [Concomitant]
  6. POTASSIUM CHLORIDE [Concomitant]
  7. MULTI-VITAMIN [Concomitant]
  8. CEREFOLIN [Concomitant]
  9. VITAMIN B-12 [Concomitant]
  10. SUPER B COMPLEX [Concomitant]
  11. TORSEMIDE [Concomitant]
  12. CENTRUM [Concomitant]
  13. CARVEDILOL [Concomitant]
  14. FUROSEMIDE [Concomitant]
  15. CIPRO [Concomitant]

REACTIONS (45)
  - ABDOMINAL PAIN [None]
  - ANXIETY [None]
  - AORTIC CALCIFICATION [None]
  - AORTIC STENOSIS [None]
  - AORTIC VALVE INCOMPETENCE [None]
  - ARTHRALGIA [None]
  - ASPIRATION [None]
  - BACK PAIN [None]
  - BLOOD CALCIUM DECREASED [None]
  - CARDIAC FAILURE CONGESTIVE [None]
  - CARDIOMEGALY [None]
  - CAROTID ARTERY STENOSIS [None]
  - CEREBRAL ATROPHY [None]
  - CHEST DISCOMFORT [None]
  - CHEST PAIN [None]
  - CONFUSIONAL STATE [None]
  - CYST [None]
  - DIVERTICULUM [None]
  - DYSPNOEA [None]
  - ECONOMIC PROBLEM [None]
  - EMOTIONAL DISTRESS [None]
  - ESCHERICHIA URINARY TRACT INFECTION [None]
  - FALL [None]
  - GLOMERULAR FILTRATION RATE INCREASED [None]
  - HEART RATE DECREASED [None]
  - HEART RATE IRREGULAR [None]
  - HYDRONEPHROSIS [None]
  - HYPOKALAEMIA [None]
  - HYPOTONIA [None]
  - LEFT ATRIAL HYPERTROPHY [None]
  - MITRAL VALVE INCOMPETENCE [None]
  - MULTIPLE INJURIES [None]
  - MUSCULOSKELETAL DISCOMFORT [None]
  - OEDEMA [None]
  - PULMONARY HYPERTENSION [None]
  - RENAL FAILURE [None]
  - SICK SINUS SYNDROME [None]
  - SYNCOPE [None]
  - THERAPEUTIC AGENT TOXICITY [None]
  - TIBIA FRACTURE [None]
  - TREMOR [None]
  - TRICUSPID VALVE INCOMPETENCE [None]
  - UNRESPONSIVE TO STIMULI [None]
  - URINARY TRACT INFECTION [None]
  - URINE KETONE BODY PRESENT [None]
